FAERS Safety Report 9827681 (Version 3)
Quarter: 2014Q1

REPORT INFORMATION
  Report Type: Report from Study
  Country: FR (occurrence: FR)
  Receive Date: 20140117
  Receipt Date: 20140224
  Transmission Date: 20141002
  Serious: Yes (Other)
  Sender: FDA-Public Use
  Company Number: FR-B.I. PHARMACEUTICALS,INC./RIDGEFIELD-2014-BI-02150BI

PATIENT
  Sex: Female

DRUGS (2)
  1. VIRAMUNE [Suspect]
     Indication: ANTIVIRAL TREATMENT
     Dosage: FORMULATION: TAB/CAPS
     Route: 048
  2. COMBIVIR [Concomitant]
     Indication: ANTIRETROVIRAL THERAPY
     Dosage: FORMULATION: TAB/CAPS
     Route: 048

REACTIONS (1)
  - Stillbirth [Unknown]
